FAERS Safety Report 5048706-8 (Version None)
Quarter: 2006Q3

REPORT INFORMATION
  Report Type: 
  Country: None (occurrence: None)
  Receive Date: 20060712
  Receipt Date: 20060630
  Transmission Date: 20061208
  Serious: Yes (Other)
  Sender: FDA-Public Use
  Company Number: PHEH2006US08483

PATIENT
  Age: 21 Year
  Sex: Female
  Weight: 85.714 kg

DRUGS (1)
  1. ZELNORM [Suspect]
     Indication: CONSTIPATION
     Dosage: 6 MG, BID
     Route: 048
     Dates: start: 20060621, end: 20060622

REACTIONS (3)
  - CONVULSION [None]
  - GRAND MAL CONVULSION [None]
  - MENTAL STATUS CHANGES [None]
